FAERS Safety Report 11159301 (Version 1)
Quarter: 2015Q2

REPORT INFORMATION
  Report Type: Spontaneous
  Country: US (occurrence: None)
  Receive Date: 20150601
  Receipt Date: 20150601
  Transmission Date: 20150821
  Serious: No
  Sender: FDA-Public Use
  Company Number: None

PATIENT
  Age: 2 Day
  Sex: Male
  Weight: 97.52 kg

DRUGS (9)
  1. ESTER C [Concomitant]
  2. MULTI VITAMIN [Concomitant]
     Active Substance: VITAMINS
  3. FISH OIL [Concomitant]
     Active Substance: FISH OIL
  4. TRAZODONE [Concomitant]
     Active Substance: TRAZODONE HYDROCHLORIDE
  5. MILK THISTLE [Concomitant]
     Active Substance: MILK THISTLE
  6. ADDERALL [Suspect]
     Active Substance: AMPHETAMINE ASPARTATE\AMPHETAMINE SULFATE\DEXTROAMPHETAMINE SACCHARATE\DEXTROAMPHETAMINE SULFATE
     Indication: ATTENTION DEFICIT/HYPERACTIVITY DISORDER
     Dosage: 50 PILLS?TWICE DAILY?TAKEN BY MOUTH
     Route: 048
     Dates: start: 20150527, end: 20150529
  7. MAGNESIUM [Concomitant]
     Active Substance: MAGNESIUM
  8. SAW PALMETTO [Concomitant]
     Active Substance: SAW PALMETTO
  9. OSTEO BI FLEX [Concomitant]

REACTIONS (2)
  - Drug effect decreased [None]
  - Product substitution issue [None]

NARRATIVE: CASE EVENT DATE: 20150529
